FAERS Safety Report 5721251-X (Version None)
Quarter: 2008Q2

REPORT INFORMATION
  Report Type: 
  Country: None (occurrence: None)
  Receive Date: 20080424
  Receipt Date: 20070511
  Transmission Date: 20081010
  Serious: Yes (Disabling, Other)
  Sender: FDA-Public Use
  Company Number: 12733

PATIENT
  Age: 6 Year
  Sex: Male

DRUGS (5)
  1. VINCRISTINE [Suspect]
     Indication: PRIMITIVE NEUROECTODERMAL TUMOUR
     Dosage: 1.5 MG/M2
  2. ETOPOSIDE [Concomitant]
  3. CISPLATIN [Concomitant]
  4. CYCLOPHOSPHAMIDE [Concomitant]
  5. CRANIOSPINAL [Concomitant]

REACTIONS (3)
  - COLOUR BLINDNESS [None]
  - OPTIC ATROPHY [None]
  - OPTIC NEUROPATHY [None]
